FAERS Safety Report 8083806-X (Version None)
Quarter: 2012Q1

REPORT INFORMATION
  Report Type: 
  Country: None (occurrence: None)
  Receive Date: 20120128
  Receipt Date: 20110128
  Transmission Date: 20120608
  Serious: No
  Sender: FDA-Public Use
  Company Number: US-ABBOTT-11P-163-0701168-00

PATIENT
  Sex: Female
  Weight: 104.42 kg

DRUGS (2)
  1. HUMIRA [Suspect]
     Indication: RHEUMATOID ARTHRITIS
     Dates: start: 20100101, end: 20101201
  2. HYDROCODONE BITARTRATE [Suspect]
     Indication: PAIN
     Dosage: UNIT DOSE 5, 2 IN 1 DAYS
     Dates: start: 20101229

REACTIONS (2)
  - NODULE [None]
  - ARTHRALGIA [None]
